FAERS Safety Report 4439883-8 (Version None)
Quarter: 2004Q3

REPORT INFORMATION
  Report Type: 
  Country: None (occurrence: None)
  Receive Date: 20040902
  Receipt Date: 20040820
  Transmission Date: 20050211
  Serious: Yes (Hospitalization)
  Sender: FDA-Public Use
  Company Number: DE-MERCK-0408DEU00167

PATIENT
  Sex: Male

DRUGS (2)
  1. FOSAMAX [Suspect]
     Indication: OSTEOPOROSIS
     Route: 048
  2. CORTISONE [Concomitant]
     Indication: OBSTRUCTIVE AIRWAYS DISORDER
     Route: 065

REACTIONS (3)
  - ILEUS [None]
  - SPONDYLITIS [None]
  - STAPHYLOCOCCAL INFECTION [None]
